FAERS Safety Report 10448095 (Version 26)
Quarter: 2015Q2

REPORT INFORMATION
  Report Type: Report from Study
  Country: JP (occurrence: JP)
  Receive Date: 20140911
  Receipt Date: 20150430
  Transmission Date: 20150821
  Serious: Yes (Hospitalization)
  Sender: FDA-Public Use
  Company Number: JP-MERCK-1408JPN002387

PATIENT
  Age: 69 Year
  Sex: Male
  Weight: 52.7 kg

DRUGS (8)
  1. EVAMYL [Concomitant]
     Active Substance: LORMETAZEPAM
     Indication: INSOMNIA
     Dosage: TOTAL DAILY DOSE 1 MG, PRN
     Route: 048
     Dates: start: 20120807, end: 20140731
  2. AZUNOL (GUAIAZULENE) [Concomitant]
     Indication: LARYNGEAL SQUAMOUS CELL CARCINOMA
     Dosage: DAILY DOSE: 1 APPLICATION, PRN, STRENGTH UNITS: APPLICATION
     Route: 061
     Dates: start: 20140609
  3. ALCADOL [Concomitant]
     Indication: HYPOCALCAEMIA
     Dosage: 1 MICROGRAM, QD
     Route: 048
     Dates: start: 20120130
  4. PURSENNID (SENNOSIDES) [Concomitant]
     Indication: CONSTIPATION
     Dosage: TOTAL DAILY DOSE 24 MG, PRN
     Route: 048
     Dates: start: 20120812
  5. LANSOPRAZOLE TOWA [Concomitant]
     Indication: PROPHYLAXIS AGAINST GASTROINTESTINAL ULCER
     Dosage: 30 MG, QD
     Route: 048
     Dates: start: 20140609, end: 20140821
  6. PEMBROLIZUMAB. [Suspect]
     Active Substance: PEMBROLIZUMAB
     Indication: HEAD AND NECK CANCER
     Dosage: 200 MG, Q3W
     Route: 042
     Dates: start: 20140715, end: 20140715
  7. THYRADIN-S [Concomitant]
     Active Substance: LEVOTHYROXINE
     Indication: HYPOTHYROIDISM
     Dosage: 100 MICROGRAM, QD
     Route: 048
     Dates: start: 20120410
  8. CALCIUM LACTATE [Concomitant]
     Active Substance: CALCIUM LACTATE
     Indication: HYPOCALCAEMIA
     Dosage: 2 G, QD
     Route: 048
     Dates: start: 20100410

REACTIONS (2)
  - Interstitial lung disease [Recovering/Resolving]
  - Infection [Recovered/Resolved]

NARRATIVE: CASE EVENT DATE: 20140725
